FAERS Safety Report 9849904 (Version 1)
Quarter: 2013Q4

REPORT INFORMATION
  Report Type: Spontaneous
  Country: US (occurrence: None)
  Receive Date: 20131226
  Receipt Date: 20131226
  Transmission Date: 20140711
  Serious: Yes (Other)
  Sender: FDA-Public Use
  Company Number: PHEH2012US025339

PATIENT
  Sex: Male
  Weight: 69.4 kg

DRUGS (11)
  1. ZOMETA (ZOLEDRONATE) UNKNOWN [Suspect]
     Indication: PROSTATE CANCER
  2. BABY ASPIRIN (ACETYLSALICYLIC ACID) [Concomitant]
  3. CALTRATE (CALCIUM CARBONATE) [Concomitant]
  4. CENTRUM (MINERALS NOS, VITAMINS NOS) [Concomitant]
  5. CRESTOR (ROSUVASTATIN CALCIUM) [Concomitant]
  6. FISH OIL (FISH OIL) [Concomitant]
  7. FOLIC ACID (FOLIC ACID) [Concomitant]
  8. LUPRON (LEUPRORELIN ACETATE) [Concomitant]
  9. OMEPRAZOLE (OMEPRAZOLE) [Concomitant]
  10. VIT B12 [Concomitant]
  11. VIT D (ERGOCALCIFEROL) [Concomitant]

REACTIONS (1)
  - Urinary tract infection [None]
